FAERS Safety Report 7484997-1 (Version None)
Quarter: 2011Q2

REPORT INFORMATION
  Report Type: 
  Country: None (occurrence: None)
  Receive Date: 20110517
  Receipt Date: 20101008
  Transmission Date: 20111010
  Serious: No
  Sender: FDA-Public Use
  Company Number: US-BAYER-201022415BCC

PATIENT
  Age: 78 Year
  Sex: Male

DRUGS (1)
  1. NAPROXEN (ALEVE) [Suspect]
     Indication: PAIN
     Dosage: 2-3 DOSES TWICE A DAY
     Route: 048

REACTIONS (1)
  - NO ADVERSE EVENT [None]
